FAERS Safety Report 9372543 (Version 1)
Quarter: 2013Q2

REPORT INFORMATION
  Report Type: Report from Study
  Country: US (occurrence: US)
  Receive Date: 20130627
  Receipt Date: 20130627
  Transmission Date: 20140414
  Serious: Yes (Death)
  Sender: FDA-Public Use
  Company Number: US-MYLANLABS-2013S1000997

PATIENT
  Age: 66 Year
  Sex: Male

DRUGS (33)
  1. CLOZAPINE TABLETS [Suspect]
     Dosage: AT NOON
     Route: 048
     Dates: start: 200707
  2. CLOZAPINE TABLETS [Suspect]
     Route: 048
     Dates: start: 200706
  3. LOPERAMIDE [Concomitant]
     Indication: DIARRHOEA
     Dates: start: 20111114
  4. NOVOLIN [Concomitant]
     Dosage: SLIDING SCALE
     Route: 058
     Dates: start: 20120601
  5. DAKIN^S SOLUTION [Concomitant]
     Dosage: GLUTEAL FOLD AS DIRECTED
     Route: 061
     Dates: start: 20120705
  6. AMANTADINE [Concomitant]
     Route: 048
     Dates: start: 20111114
  7. CARBIDOPA/LEVODOPA [Concomitant]
     Dosage: 25-100MG
     Route: 048
     Dates: start: 20111114
  8. DOCUSATE [Concomitant]
     Route: 048
     Dates: start: 20111114
  9. VALPROIC ACID [Concomitant]
     Route: 048
     Dates: start: 20111114
  10. CHOLESTYRAMINE [Concomitant]
     Dosage: 4GM WITH 40OZ OF WATER OR JUICE
     Route: 048
     Dates: start: 20121205
  11. LACTULOSE [Concomitant]
     Route: 048
     Dates: start: 20121211
  12. COLLAGENASE SANTYL [Concomitant]
     Dosage: NICKLE SIZE AMOUNT TO LEFT HIP WOUND
     Route: 061
     Dates: start: 20121211
  13. FENTANYL [Concomitant]
     Dosage: Q 72 HOURS
     Route: 062
     Dates: start: 20121211
  14. MORPHINE [Concomitant]
     Dosage: FOR PAIN WITH CARE
     Route: 060
     Dates: start: 20121211
  15. HALOPERIDOL [Concomitant]
     Indication: NAUSEA
     Route: 048
     Dates: start: 20121213
  16. HYDROCHLOROTH [Concomitant]
     Route: 048
     Dates: start: 20121217
  17. PROCHLORPERAZ [Concomitant]
     Indication: NAUSEA
     Dosage: EVERY SIX HOURS AS NEEDED FOR NAUSEA
     Route: 054
     Dates: start: 20121218
  18. HALOPERIDOL [Concomitant]
     Indication: NAUSEA
     Route: 048
     Dates: start: 20130104
  19. CARBIDOPA/LEVODOPA [Concomitant]
     Dosage: 25-100MG
     Route: 048
     Dates: start: 20111114
  20. IPRATROPIUM BROMIDE AND ALBUTEROL SULFATE INHALATION SOLUTION [Concomitant]
     Route: 055
     Dates: start: 20120308
  21. VALPROIC ACID [Concomitant]
     Route: 048
     Dates: start: 20111114
  22. BISCOLAX [Concomitant]
     Route: 054
     Dates: start: 20111114
  23. FLEET ENEMA /00103901/ [Concomitant]
     Route: 054
     Dates: start: 20111114
  24. IPRATROPIUM BROMIDE AND ALBUTEROL SULFATE INHALATION SOLUTION [Concomitant]
     Indication: DYSPNOEA
     Dosage: AS NEEDED EVERY HOUR FOR SHORTNESS OF BREATH WHEEZING
     Route: 055
     Dates: start: 20120308
  25. MILK OF MAGNESIA [Concomitant]
     Indication: CONSTIPATION
     Route: 048
     Dates: start: 20111114
  26. IBUPROFEN [Concomitant]
     Indication: PYREXIA
     Dosage: 400 MG EVERY 6 HOURS AS NEEDED FOR TEMP }101
     Route: 048
     Dates: start: 20120826
  27. MORPHINE [Concomitant]
     Indication: PAIN
     Dosage: EVERY TWO HOURS AS NEEDED FOR PAIN
     Route: 030
     Dates: start: 20120826
  28. OXYCODONE [Concomitant]
     Indication: PAIN
     Route: 048
     Dates: start: 20120826
  29. ACETAMINOPHEN [Concomitant]
     Indication: PAIN
     Dosage: EVERY 4 HOURS AS NEEDED FOR PAIN AND FEVER
     Route: 054
     Dates: start: 20121206
  30. BISCOLAX [Concomitant]
     Indication: CONSTIPATION
     Dosage: EVERYDAY AS NEEDED FOR CONSTIPATION
     Route: 054
     Dates: start: 20121206
  31. ATROPINE [Concomitant]
     Indication: SALIVARY HYPERSECRETION
     Dosage: 4 DROPS SUBLINGIALLY EVERY 4 HOURS AS NEEDED FOR EXCESSIVE SECRETIONS.
     Route: 048
     Dates: start: 20121206
  32. COLLAGENASE SANTYL [Concomitant]
     Indication: WOUND
     Dosage: NICKLE SIZE AMOUNT OT LEFT HIP WOUND AS NEEDED
     Route: 061
     Dates: start: 20121211
  33. MORPHINE [Concomitant]
     Indication: PAIN
     Dosage: AS NEEDED FOR PAIN OR SHORTNESS OF BREATH
     Route: 060
     Dates: start: 20121211

REACTIONS (1)
  - Death [Fatal]
